FAERS Safety Report 5712401-X (Version None)
Quarter: 2008Q2

REPORT INFORMATION
  Report Type: 
  Country: None (occurrence: None)
  Receive Date: 20080422
  Receipt Date: 20080411
  Transmission Date: 20081010
  Serious: Yes (Other)
  Sender: FDA-Public Use
  Company Number: US-JNJFOC-20080403990

PATIENT
  Sex: Female
  Weight: 68.04 kg

DRUGS (5)
  1. INFLIXIMAB [Suspect]
     Route: 042
  2. INFLIXIMAB [Suspect]
     Indication: CROHN'S DISEASE
     Dosage: UNKNOWN NUMBER OF INFUSONS
     Route: 042
  3. MERCAPTOPURINE [Concomitant]
     Indication: CROHN'S DISEASE
  4. SULFASALAZINE [Concomitant]
     Indication: CROHN'S DISEASE
  5. ANTIBIOTICS [Concomitant]
     Indication: CROHN'S DISEASE

REACTIONS (2)
  - COLONIC STENOSIS [None]
  - DYSPLASIA [None]
